FAERS Safety Report 5265557-X (Version None)
Quarter: 2007Q1

REPORT INFORMATION
  Report Type: 
  Country: None (occurrence: None)
  Receive Date: 20070314
  Receipt Date: 20070309
  Transmission Date: 20070707
  Serious: Yes (Hospitalization)
  Sender: FDA-Public Use
  Company Number: FR-MERCK-0701FRA00066

PATIENT
  Age: 76 Year
  Sex: Female

DRUGS (10)
  1. VYTORIN [Suspect]
     Indication: HYPERCHOLESTEROLAEMIA
     Route: 048
     Dates: start: 20060801, end: 20061120
  2. GLIMEPIRIDE [Concomitant]
     Indication: DIABETES MELLITUS NON-INSULIN-DEPENDENT
     Route: 048
  3. BISOPROLOL FUMARATE [Concomitant]
     Indication: HYPERTENSION
     Route: 048
  4. IRBESARTAN [Concomitant]
     Indication: HYPERTENSION
     Route: 048
  5. FUROSEMIDE [Concomitant]
     Indication: HYPERTENSION
     Route: 048
  6. TRIMETAZIDINE HYDROCHLORIDE [Concomitant]
     Route: 048
  7. OMEPRAZOLE [Concomitant]
     Indication: GASTROOESOPHAGEAL REFLUX DISEASE
     Route: 048
  8. CALCIUM CARBONATE AND CHOLECALCIFEROL [Concomitant]
     Indication: OSTEOPOROSIS
     Route: 048
  9. DICLOFENAC SODIUM [Concomitant]
     Indication: OSTEOARTHRITIS
     Route: 048
  10. CLONAZEPAM [Concomitant]
     Route: 048

REACTIONS (1)
  - LEUKOCYTOCLASTIC VASCULITIS [None]
